FAERS Safety Report 14679680 (Version 1)
Quarter: 2018Q1

REPORT INFORMATION
  Report Type: Spontaneous
  Country: TR (occurrence: TR)
  Receive Date: 20180326
  Receipt Date: 20180326
  Transmission Date: 20180509
  Serious: Yes (Life-Threatening, Hospitalization, Other)
  Sender: FDA-Public Use
  Company Number: TR-MYLANLABS-2018M1019167

PATIENT
  Age: 52 Year
  Sex: Male

DRUGS (1)
  1. DIMETHYL SULFOXIDE. [Suspect]
     Active Substance: DIMETHYL SULFOXIDE
     Indication: BLOOD STEM CELL HARVEST
     Dosage: 10 ML DMSO IN EACH BAG USED FOR CRYOPRESERVATION OF PBPCS (INFUSION)
     Route: 050

REACTIONS (3)
  - Cardiac arrest [Unknown]
  - Generalised tonic-clonic seizure [Recovered/Resolved]
  - Respiratory arrest [Unknown]
